FAERS Safety Report 7758483-5 (Version None)
Quarter: 2011Q3

REPORT INFORMATION
  Report Type: 
  Country: None (occurrence: None)
  Receive Date: 20110919
  Receipt Date: 20110913
  Transmission Date: 20111222
  Serious: No
  Sender: FDA-Public Use
  Company Number: US-PFIZER INC-2011216235

PATIENT
  Sex: Female

DRUGS (2)
  1. SERTRALINE HYDROCHLORIDE [Suspect]
     Indication: DEPRESSION
     Dosage: UNK, 3X/DAY
     Dates: start: 19940101
  2. NEURONTIN [Suspect]
     Dosage: UNK
     Dates: end: 20110823

REACTIONS (3)
  - INCOHERENT [None]
  - SPEECH DISORDER [None]
  - DYSPHEMIA [None]
